FAERS Safety Report 8805673 (Version 2)
Quarter: 2012Q4

REPORT INFORMATION
  Report Type: 
  Country: US (occurrence: US)
  Receive Date: 20120924
  Receipt Date: 20121015
  Transmission Date: 20130627
  Serious: Yes (Death)
  Sender: FDA-Public Use
  Company Number: US-ROCHE-1125019

PATIENT
  Sex: Male

DRUGS (1)
  1. AVASTIN [Suspect]
     Indication: MALIGNANT SOFT TISSUE NEOPLASM
     Route: 065

REACTIONS (2)
  - Neoplasm malignant [Fatal]
  - Metastases to chest wall [Unknown]
